FAERS Safety Report 15367271 (Version 2)
Quarter: 2018Q3

REPORT INFORMATION
  Report Type: Spontaneous
  Country: JP (occurrence: JP)
  Receive Date: 20180910
  Receipt Date: 20180920
  Transmission Date: 20181010
  Serious: Yes (Death, Other)
  Sender: FDA-Public Use
  Company Number: JP-SAKK-2018SA241389AA

PATIENT
  Age: 83 Year
  Sex: Male

DRUGS (4)
  1. JEVTANA [Suspect]
     Active Substance: CABAZITAXEL
     Indication: HORMONE-REFRACTORY PROSTATE CANCER
     Dosage: 20MG, TWICE EVERY 4 WEEKS
     Route: 041
     Dates: start: 20180620, end: 20180718
  2. PARACETAMOL [Concomitant]
     Active Substance: ACETAMINOPHEN
     Indication: PRODUCT USED FOR UNKNOWN INDICATION
     Dosage: 500 MG, TID
     Route: 048
     Dates: start: 20180802, end: 20180808
  3. DENOTAS [Concomitant]
     Active Substance: CALCIUM CARBONATE\CHOLECALCIFEROL\MAGNESIUM CARBONATE
     Indication: PRODUCT USED FOR UNKNOWN INDICATION
     Dosage: 2 DF, QD
     Route: 048
     Dates: start: 20180802, end: 20180808
  4. LOXOPROFEN [LOXOPROFEN SODIUM] [Concomitant]
     Indication: PRODUCT USED FOR UNKNOWN INDICATION
     Dosage: 60 MG AS NEEDED FOR PAIN
     Route: 048
     Dates: start: 20180805

REACTIONS (2)
  - Herpes dermatitis [Fatal]
  - Meningitis [Fatal]

NARRATIVE: CASE EVENT DATE: 20180731
